FAERS Safety Report 7622850-0 (Version None)
Quarter: 2011Q3

REPORT INFORMATION
  Report Type: 
  Country: None (occurrence: None)
  Receive Date: 20110720
  Receipt Date: 20110715
  Transmission Date: 20111222
  Serious: Yes (Life-Threatening, Other)
  Sender: FDA-Public Use
  Company Number: JP-ASTELLAS-2011US002367

PATIENT
  Sex: Male

DRUGS (18)
  1. VFEND [Suspect]
     Dosage: 600 MG, UID/QD
     Route: 042
     Dates: start: 20101117, end: 20101125
  2. AMBISOME [Suspect]
     Dosage: 120 MG, UID/QD
     Route: 042
     Dates: start: 20101117, end: 20101130
  3. VFEND [Suspect]
     Dosage: 400 MG, UID/QD
     Route: 048
     Dates: start: 20110410
  4. HUMALOG [Concomitant]
     Indication: PRODUCT USED FOR UNKNOWN INDICATION
     Dosage: UNK
     Route: 065
  5. AMBISOME [Suspect]
     Dosage: 165 MG, UID/QD
     Route: 042
     Dates: start: 20101201, end: 20101210
  6. KINEDAK [Concomitant]
     Indication: PRODUCT USED FOR UNKNOWN INDICATION
     Dosage: UNK
     Route: 065
  7. VFEND [Suspect]
     Dosage: 400 MG, UID/QD
     Route: 042
     Dates: start: 20101202, end: 20110110
  8. ACTOS [Concomitant]
     Indication: PRODUCT USED FOR UNKNOWN INDICATION
     Dosage: UNK
     Route: 065
  9. VFEND [Suspect]
     Dosage: 400 MG, UID/QD
     Route: 048
     Dates: start: 20110409, end: 20110409
  10. FUNGUARD [Suspect]
     Indication: FUNGAL RHINITIS
     Dosage: 150 MG, UID/QD
     Route: 042
     Dates: start: 20101218, end: 20110412
  11. METFORMIN HCL [Concomitant]
     Indication: PRODUCT USED FOR UNKNOWN INDICATION
     Dosage: UNK
     Route: 065
  12. LANTUS [Concomitant]
     Indication: PRODUCT USED FOR UNKNOWN INDICATION
     Dosage: UNK
     Route: 065
  13. MEROPENEM [Concomitant]
     Indication: INFECTION
     Dosage: 1.5 G, UID/QD
     Route: 065
     Dates: start: 20101116, end: 20101123
  14. SAXIZON [Concomitant]
     Indication: SINUSITIS FUNGAL
     Dosage: 500 MG, UID/QD
     Route: 065
     Dates: start: 20101117, end: 20101119
  15. AMBISOME [Suspect]
     Indication: SINUSITIS FUNGAL
     Dosage: 220 MG, UID/QD
     Route: 042
     Dates: start: 20101211, end: 20110408
  16. VFEND [Suspect]
     Indication: FUNGAL RHINITIS
     Dosage: 440 MG, UID/QD
     Route: 042
     Dates: start: 20110111, end: 20110408
  17. VFEND [Suspect]
     Dosage: 200 MG, UID/QD
     Route: 048
     Dates: start: 20110409, end: 20110409
  18. ALESION [Concomitant]
     Indication: PRODUCT USED FOR UNKNOWN INDICATION
     Dosage: UNK
     Route: 065

REACTIONS (4)
  - DRUG INEFFECTIVE [None]
  - CHOLESTASIS [None]
  - RENAL DISORDER [None]
  - PANCYTOPENIA [None]
